FAERS Safety Report 19187424 (Version 1)
Quarter: 2021Q2

REPORT INFORMATION
  Report Type: Spontaneous
  Country: US (occurrence: US)
  Receive Date: 20210428
  Receipt Date: 20210428
  Transmission Date: 20210717
  Serious: Yes (Hospitalization)
  Sender: FDA-Public Use
  Company Number: US-ROCHE-2818978

PATIENT
  Sex: Male

DRUGS (18)
  1. ASPIRIN. [Concomitant]
     Active Substance: ASPIRIN
  2. LASIX [Concomitant]
     Active Substance: FUROSEMIDE
  3. GLUCOSAMINE [Concomitant]
     Active Substance: GLUCOSAMINE
  4. HYDROXYZINE HCL [Concomitant]
     Active Substance: HYDROXYZINE HYDROCHLORIDE
  5. MONTELUKAST [Concomitant]
     Active Substance: MONTELUKAST SODIUM
  6. AZELASTINE. [Concomitant]
     Active Substance: AZELASTINE HYDROCHLORIDE
  7. FISH OIL [Concomitant]
     Active Substance: FISH OIL
  8. LATANOPROST. [Concomitant]
     Active Substance: LATANOPROST
  9. ZETIA [Concomitant]
     Active Substance: EZETIMIBE
  10. COENZYME Q10 [Concomitant]
     Active Substance: DIETARY SUPPLEMENT\UBIDECARENONE
  11. MELATONIN [Concomitant]
     Active Substance: MELATONIN
  12. SERTRALINE [Concomitant]
     Active Substance: SERTRALINE HYDROCHLORIDE
  13. MUCINEX [Concomitant]
     Active Substance: GUAIFENESIN
  14. PRAVASTATIN. [Concomitant]
     Active Substance: PRAVASTATIN
  15. ESBRIET [Suspect]
     Active Substance: PIRFENIDONE
     Indication: IDIOPATHIC PULMONARY FIBROSIS
     Route: 048
     Dates: start: 20191205
  16. DILTIAZEM ER [Concomitant]
     Active Substance: DILTIAZEM
  17. GINGER ROOT [Concomitant]
     Active Substance: GINGER
  18. TURMERIC [Concomitant]
     Active Substance: HERBALS\TURMERIC

REACTIONS (1)
  - Liver disorder [Unknown]
